FAERS Safety Report 4866103-2 (Version None)
Quarter: 2005Q4

REPORT INFORMATION
  Report Type: 
  Country: None (occurrence: None)
  Receive Date: 20051221
  Receipt Date: 20051207
  Transmission Date: 20060501
  Serious: Yes (Hospitalization, Other)
  Sender: FDA-Public Use
  Company Number: HQWYE895907DEC05

PATIENT
  Age: 42 Year
  Sex: Male

DRUGS (11)
  1. RAPAMUNE [Suspect]
     Indication: PROPHYLAXIS AGAINST TRANSPLANT REJECTION
     Dosage: ORAL
     Route: 048
     Dates: start: 20040901, end: 20050403
  2. MYCOPHENOLATE MOFETIL        (MYCOPHENOLATE MOFETIL,) [Suspect]
     Indication: IMMUNOSUPPRESSANT DRUG THERAPY
     Dosage: 500 MG 3X PER 1 DAY
     Dates: start: 20050404
  3. MYCOPHENOLATE MOFETIL        (MYCOPHENOLATE MOFETIL,) [Suspect]
     Indication: PROPHYLAXIS AGAINST TRANSPLANT REJECTION
     Dosage: 500 MG 3X PER 1 DAY
     Dates: start: 20050404
  4. PREDNISONE [Suspect]
     Indication: IMMUNOSUPPRESSANT DRUG THERAPY
     Dosage: 5 MG 1X PER 1 DAY
  5. PREDNISONE [Suspect]
     Indication: PROPHYLAXIS AGAINST TRANSPLANT REJECTION
     Dosage: 5 MG 1X PER 1 DAY
  6. TACROLIMUS           (TACROLIMUS,) [Suspect]
     Indication: IMMUNOSUPPRESSANT DRUG THERAPY
     Dosage: 3 MG 1X PER 1 DAY
     Dates: start: 20040901
  7. TACROLIMUS           (TACROLIMUS,) [Suspect]
     Indication: PROPHYLAXIS AGAINST TRANSPLANT REJECTION
     Dosage: 3 MG 1X PER 1 DAY
     Dates: start: 20040901
  8. METOPROLOL SUCCINATE [Concomitant]
  9. COTRIM FORTE L.U.T           . (SULFAMETHOXAZOLE/TRIMETHOPRIM) [Concomitant]
  10. SOMESE (TRIAZOLAM) [Concomitant]
  11. PANTOPRAZOLE SODIUM [Concomitant]

REACTIONS (2)
  - HUMAN POLYOMAVIRUS INFECTION [None]
  - TRANSPLANT REJECTION [None]
